FAERS Safety Report 5505507-1 (Version None)
Quarter: 2007Q4

REPORT INFORMATION
  Report Type: 
  Country: None (occurrence: None)
  Receive Date: 20071102
  Receipt Date: 20071019
  Transmission Date: 20080405
  Serious: Yes (Other)
  Sender: FDA-Public Use
  Company Number: DE-GENENTECH-247510

PATIENT
  Sex: Female

DRUGS (2)
  1. XOLAIR [Suspect]
     Indication: ASTHMA
     Dosage: 750 MG, 1/MONTH
     Route: 058
     Dates: start: 20060101
  2. XOLAIR [Suspect]
     Dosage: 300 MG, 2/WEEK
     Route: 058
     Dates: start: 20060101

REACTIONS (1)
  - THYROID NEOPLASM [None]
